FAERS Safety Report 4262077-6 (Version None)
Quarter: 2004Q1

REPORT INFORMATION
  Report Type: 
  Country: None (occurrence: None)
  Receive Date: 20040102
  Receipt Date: 20031220
  Transmission Date: 20041129
  Serious: Yes (Other)
  Sender: FDA-Public Use
  Company Number: GB-GLAXOSMITHKLINE-B0318310A

PATIENT
  Age: 77 Year
  Sex: Female
  Weight: 60 kg

DRUGS (6)
  1. AVANDIA [Suspect]
     Indication: DIABETES MELLITUS
     Dosage: 4MG PER DAY
     Route: 048
  2. GLICLAZIDE [Suspect]
     Indication: DIABETES MELLITUS NON-INSULIN-DEPENDENT
     Dosage: 160MG TWICE PER DAY
     Route: 048
  3. CLARITHROMYCIN [Suspect]
     Indication: URINARY TRACT INFECTION
     Dosage: 250MG TWICE PER DAY
     Route: 065
     Dates: start: 20031210
  4. TRITACE [Concomitant]
     Indication: HYPERTENSION
     Dosage: 10MG PER DAY
     Route: 048
  5. CARDURA XL [Concomitant]
     Indication: HYPERTENSION
     Dosage: 4MG PER DAY
     Route: 048
  6. ZOCOR [Concomitant]
     Indication: HYPERCHOLESTEROLAEMIA
     Dosage: 40MG PER DAY
     Route: 048

REACTIONS (3)
  - CIRCULATORY COLLAPSE [None]
  - DRUG INTERACTION [None]
  - HYPOGLYCAEMIA [None]
